FAERS Safety Report 26116741 (Version 2)
Quarter: 2025Q4

REPORT INFORMATION
  Report Type: Spontaneous
  Country: US (occurrence: US)
  Receive Date: 20251203
  Receipt Date: 20251204
  Transmission Date: 20260118
  Serious: Yes (Hospitalization)
  Sender: MYLAN
  Company Number: US-MYLANLABS-2025M1102815

PATIENT
  Age: 57 Year
  Sex: Male

DRUGS (2)
  1. CLOZAPINE [Suspect]
     Active Substance: CLOZAPINE
     Indication: Schizoaffective disorder
     Dosage: 400 MILLIGRAM, 400MG NIGHTLY
  2. CLOZAPINE [Suspect]
     Active Substance: CLOZAPINE
     Dosage: UNK, THE PATIENT REFUSED TO REINITIATE THE THERAPY

REACTIONS (7)
  - Treatment noncompliance [Unknown]
  - Withdrawal syndrome [Unknown]
  - Withdrawal catatonia [Recovered/Resolved]
  - Cholinergic syndrome [Unknown]
  - Confusional state [Unknown]
  - Increased upper airway secretion [Unknown]
  - Aspiration [Unknown]
